FAERS Safety Report 8376407-7 (Version None)
Quarter: 2012Q2

REPORT INFORMATION
  Report Type: 
  Country: None (occurrence: None)
  Receive Date: 20120522
  Receipt Date: 20120514
  Transmission Date: 20120825
  Serious: Yes (Other)
  Sender: FDA-Public Use
  Company Number: PHHY2012AT037732

PATIENT
  Age: 61 Year
  Sex: Female
  Weight: 61 kg

DRUGS (6)
  1. AFINITOR [Suspect]
     Dosage: 5 MG AND 10 MG DAILY ALTERNATIVELY
     Route: 048
     Dates: start: 20120326
  2. AROMASIN [Concomitant]
     Indication: BREAST CANCER
     Route: 048
     Dates: start: 20120112
  3. AFINITOR [Suspect]
     Indication: BREAST CANCER
     Dosage: 10 MG, DAILY
     Route: 048
     Dates: start: 20120112, end: 20120130
  4. ZOMETA [Concomitant]
     Indication: METASTASES TO BONE
     Dosage: 4 MG, ONCE IN A MONTH
     Route: 042
     Dates: start: 20110701
  5. CALCIUM WITH VITAMIN D [Concomitant]
     Indication: METASTASES TO BONE
     Route: 048
     Dates: start: 20100701
  6. AFINITOR [Suspect]
     Dosage: 10 MG EVERY SECOND DAY
     Route: 048
     Dates: start: 20120203, end: 20120324

REACTIONS (6)
  - HAEMOGLOBIN DECREASED [None]
  - HAEMATOTOXICITY [None]
  - STOMATITIS [None]
  - PLATELET COUNT DECREASED [None]
  - WHITE BLOOD CELL COUNT DECREASED [None]
  - NEUTROPHIL COUNT DECREASED [None]
